FAERS Safety Report 22078929 (Version 4)
Quarter: 2023Q2

REPORT INFORMATION
  Report Type: Spontaneous
  Country: US (occurrence: US)
  Receive Date: 20230309
  Receipt Date: 20230502
  Transmission Date: 20230722
  Serious: No
  Sender: FDA-Public Use
  Company Number: US-PFIZER INC-202300094989

PATIENT
  Age: 10 Year
  Sex: Male

DRUGS (1)
  1. GENOTROPIN [Suspect]
     Active Substance: SOMATROPIN
     Dosage: UNK
     Dates: start: 2022

REACTIONS (3)
  - Poor quality device used [Unknown]
  - Device mechanical issue [Unknown]
  - Expired device used [Unknown]

NARRATIVE: CASE EVENT DATE: 20220101
